FAERS Safety Report 11113131 (Version 2)
Quarter: 2015Q2

REPORT INFORMATION
  Report Type: Spontaneous
  Country: US (occurrence: US)
  Receive Date: 20150514
  Receipt Date: 20150525
  Transmission Date: 20150821
  Serious: Yes (Other)
  Sender: FDA-Public Use
  Company Number: US-AMGEN-USASP2015045050

PATIENT
  Age: 72 Year
  Sex: Female
  Weight: 56.24 kg

DRUGS (12)
  1. ALEVE [Concomitant]
     Active Substance: NAPROXEN SODIUM
     Indication: ARTHRITIS
     Dosage: 1-2 AS NECESSARY
  2. PROLIA [Suspect]
     Active Substance: DENOSUMAB
     Indication: OSTEOPOROSIS POSTMENOPAUSAL
     Dosage: 60 MG, Q6MO
     Route: 058
     Dates: start: 20120417
  3. PROLIA [Suspect]
     Active Substance: DENOSUMAB
     Dosage: 50 UNK, UNK
     Route: 058
  4. VITAMIN D                          /00107901/ [Concomitant]
     Active Substance: ERGOCALCIFEROL
     Indication: OSTEOPOROSIS
     Dosage: 1000 IU, QD
  5. ZOCOR [Concomitant]
     Active Substance: SIMVASTATIN
     Indication: HYPERLIPIDAEMIA
     Dosage: 5 MG, NIGHTLY
     Route: 048
     Dates: start: 201003
  6. PROLIA [Suspect]
     Active Substance: DENOSUMAB
     Dosage: 60 UNK, UNK
     Route: 058
  7. CALCIUM VITAMIN D [Concomitant]
     Active Substance: CALCIUM\VITAMIN D
     Indication: OSTEOPOROSIS
     Dosage: 600MG/400MG
     Route: 048
  8. ASPIRIN                            /00002701/ [Concomitant]
     Active Substance: ASPIRIN
     Indication: CAROTID ARTERY STENOSIS
     Dosage: 81 MG, QD
     Route: 048
  9. PROLIA [Suspect]
     Active Substance: DENOSUMAB
     Dosage: 60 MG, UNK
     Route: 058
  10. ONE-A-DAY WOMEN^S [Concomitant]
     Active Substance: VITAMINS
     Dosage: 1 DF, QD, 1000 D, 500 CA
  11. TYLENOL [Concomitant]
     Active Substance: ACETAMINOPHEN
     Dosage: UNK, AS NECESSARY
  12. PROLIA [Suspect]
     Active Substance: DENOSUMAB
     Dosage: 60 UNK, UNK
     Route: 058

REACTIONS (7)
  - Weight decreased [Unknown]
  - Goitre [Unknown]
  - Avulsion fracture [Recovering/Resolving]
  - Ligament rupture [Recovering/Resolving]
  - Ankle fracture [Recovering/Resolving]
  - Hyperparathyroidism [Unknown]
  - Blood parathyroid hormone increased [Unknown]

NARRATIVE: CASE EVENT DATE: 201204
